FAERS Safety Report 6390688-0 (Version None)
Quarter: 2009Q4

REPORT INFORMATION
  Report Type: 
  Country: None (occurrence: None)
  Receive Date: 20091003
  Receipt Date: 20090930
  Transmission Date: 20100525
  Serious: Yes (Life-Threatening)
  Sender: FDA-Public Use
  Company Number: 2009TJ0177

PATIENT
  Age: 43 Year
  Sex: Male

DRUGS (1)
  1. EPINEPHRINE [Suspect]
     Indication: ANAPHYLACTIC REACTION
     Dosage: 0.3MG, AS NEEDED
     Dates: start: 20090802, end: 20090802

REACTIONS (4)
  - DEVICE FAILURE [None]
  - LIP SWELLING [None]
  - OEDEMA PERIPHERAL [None]
  - PARAESTHESIA [None]
